FAERS Safety Report 8008111-9 (Version None)
Quarter: 2011Q4

REPORT INFORMATION
  Report Type: 
  Country: None (occurrence: None)
  Receive Date: 20111227
  Receipt Date: 20111221
  Transmission Date: 20120403
  Serious: Yes (Death, Hospitalization)
  Sender: FDA-Public Use
  Company Number: PHHY2011JP111125

PATIENT
  Sex: Female
  Weight: 40 kg

DRUGS (4)
  1. CARBIDOPA + LEVODOPA [Concomitant]
     Indication: PARKINSON'S DISEASE
     Dosage: 150 MG, UNK
     Route: 048
     Dates: start: 20080716
  2. PRAMIPEXOLE DIHYDROCHLORIDE [Concomitant]
     Dosage: 0.5 MG, UNK
     Route: 048
     Dates: start: 20080716
  3. ENTACAPONE [Suspect]
     Indication: DRUG EFFECT DECREASED
     Dosage: 300 MG, DAILY
     Route: 048
     Dates: start: 20080820
  4. PRAMIPEXOLE DIHYDROCHLORIDE [Concomitant]
     Indication: PARKINSON'S DISEASE
     Dosage: 1 MG, UNK
     Route: 048
     Dates: start: 20080716

REACTIONS (2)
  - PNEUMONIA [None]
  - FRACTURE [None]
